FAERS Safety Report 8513396 (Version 2)
Quarter: 2012Q4

REPORT INFORMATION
  Report Type: 
  Country: US (occurrence: None)
  Receive Date: 20120309
  Receipt Date: 20120608
  Transmission Date: 20130627
  Serious: No
  Sender: FDA-Public Use
  Company Number: TH-2012-00098

PATIENT
  Sex: Male

DRUGS (3)
  1. EGRIFTA [Suspect]
     Indication: PRODUCT USED FOR UNKNOWN INDICATION
     Dates: start: 201109, end: 20111216
  2. EGRIFTA [Suspect]
     Indication: LIPODYSTROPHY
     Dates: start: 201109, end: 20111216
  3. ART UNSPECIFIED (DIACEREIN) [Concomitant]

REACTIONS (1)
  - Glycosylated haemoglobin increased [None]
